FAERS Safety Report 6832344-8 (Version None)
Quarter: 2010Q3

REPORT INFORMATION
  Report Type: 
  Country: None (occurrence: None)
  Receive Date: 20100707
  Receipt Date: 20100622
  Transmission Date: 20110219
  Serious: Yes (Death)
  Sender: FDA-Public Use
  Company Number: 1000014188

PATIENT
  Age: 18 Year
  Sex: Female

DRUGS (4)
  1. ESCITALOPRAM [Suspect]
     Indication: DEPRESSION
     Dosage: 10 MG (10 MG, 1 IN 1 D), ORAL
     Route: 048
     Dates: start: 20100320, end: 20100320
  2. ESCITALOPRAM [Suspect]
     Indication: DEPRESSION
     Dosage: 10 MG (10 MG, 1 IN 1 D), ORAL
     Route: 048
     Dates: start: 20100301
  3. PROPAFENONE [Suspect]
     Dosage: ORAL
     Route: 048
     Dates: start: 20100320, end: 20100320
  4. ACETYLSALICYLIC ACID [Suspect]
     Dates: start: 20100320, end: 20100320

REACTIONS (8)
  - BRAIN OEDEMA [None]
  - COMPLETED SUICIDE [None]
  - DRUG TOXICITY [None]
  - INTENTIONAL OVERDOSE [None]
  - PULMONARY OEDEMA [None]
  - SHOCK HAEMORRHAGIC [None]
  - TRAUMATIC HAEMORRHAGE [None]
  - TRAUMATIC SHOCK [None]
